FAERS Safety Report 5145589-2 (Version None)
Quarter: 2006Q4

REPORT INFORMATION
  Report Type: 
  Country: None (occurrence: None)
  Receive Date: 20061107
  Receipt Date: 20061031
  Transmission Date: 20070319
  Serious: Yes (Life-Threatening, Hospitalization, Disabling)
  Sender: FDA-Public Use
  Company Number: US-MERCK-0611USA00645

PATIENT
  Age: 72 Year
  Sex: Female

DRUGS (17)
  1. COUMADIN [Concomitant]
     Route: 065
     Dates: start: 20061023, end: 20061027
  2. COUMADIN [Concomitant]
     Route: 065
     Dates: start: 20061027, end: 20061030
  3. COUMADIN [Concomitant]
     Route: 065
     Dates: start: 20061030
  4. LIPITOR [Concomitant]
     Route: 065
  5. EMEND [Suspect]
     Indication: PROPHYLAXIS OF NAUSEA AND VOMITING
     Route: 048
     Dates: start: 20061020, end: 20061020
  6. EMEND [Suspect]
     Route: 048
     Dates: start: 20061021, end: 20061022
  7. EMEND [Suspect]
     Route: 048
     Dates: start: 20060928
  8. EMEND [Suspect]
     Route: 065
     Dates: start: 20060101, end: 20061103
  9. TAXOL [Concomitant]
     Indication: NEOPLASM
     Route: 065
     Dates: start: 20061020
  10. DECADRON [Concomitant]
     Route: 065
     Dates: start: 20061020
  11. COUMADIN [Concomitant]
     Route: 065
     Dates: start: 20061001, end: 20061023
  12. COUMADIN [Concomitant]
     Route: 065
     Dates: start: 20061023, end: 20061027
  13. SYNTHROID [Concomitant]
     Route: 065
  14. OMEGA-3 MARINE TRIGLYCERIDES [Concomitant]
     Route: 065
  15. METFORMIN [Concomitant]
     Route: 065
  16. MIRTAZAPINE [Concomitant]
     Route: 065
  17. AMBIEN [Concomitant]
     Route: 065

REACTIONS (2)
  - CATHETER RELATED INFECTION [None]
  - INTERNATIONAL NORMALISED RATIO DECREASED [None]
